FAERS Safety Report 11648734 (Version 1)
Quarter: 2015Q4

REPORT INFORMATION
  Report Type: Spontaneous
  Country: CN (occurrence: CN)
  Receive Date: 20151021
  Receipt Date: 20151021
  Transmission Date: 20160304
  Serious: Yes (Other)
  Sender: FDA-Public Use
  Company Number: CN-PFIZER INC-2015344322

PATIENT
  Age: 71 Year
  Sex: Female
  Weight: 57 kg

DRUGS (2)
  1. ERBITUX [Suspect]
     Active Substance: CETUXIMAB
     Indication: COLON CANCER METASTATIC
     Dosage: CYCLE 3, 400 MG/M2,(800 MG D1-Q14D) CYCLIC
     Route: 041
     Dates: start: 20150204, end: 20150217
  2. CAMPTO [Suspect]
     Active Substance: IRINOTECAN
     Indication: COLON CANCER METASTATIC
     Dosage: CYCLE 3, 150 MG/M2 (240MG ONCE DAILY D1-D14) CYCLIC
     Route: 041
     Dates: start: 20150204, end: 20150217

REACTIONS (5)
  - Nausea [Recovered/Resolved]
  - Feeling cold [Recovered/Resolved]
  - Diarrhoea [Recovering/Resolving]
  - Agranulocytosis [Recovered/Resolved]
  - Pyrexia [Recovered/Resolved]

NARRATIVE: CASE EVENT DATE: 201502
